FAERS Safety Report 7084301-7 (Version None)
Quarter: 2010Q4

REPORT INFORMATION
  Report Type: 
  Country: None (occurrence: None)
  Receive Date: 20101104
  Receipt Date: 20101028
  Transmission Date: 20110411
  Serious: Yes (Other)
  Sender: FDA-Public Use
  Company Number: US-PFIZER INC-2010137661

PATIENT
  Sex: Male
  Weight: 79.365 kg

DRUGS (3)
  1. LIPITOR [Suspect]
     Indication: BLOOD CHOLESTEROL INCREASED
     Dosage: 10 MG, DAILY
     Route: 048
  2. MULTI-VITAMINS [Concomitant]
     Dosage: UNK
  3. RAMIPRIL [Concomitant]
     Dosage: UNK

REACTIONS (4)
  - IMPAIRED HEALING [None]
  - MENISCUS LESION [None]
  - MUSCLE RUPTURE [None]
  - MYALGIA [None]
